FAERS Safety Report 23975962 (Version 1)
Quarter: 2024Q2

REPORT INFORMATION
  Report Type: Spontaneous
  Country: DE (occurrence: DE)
  Receive Date: 20240614
  Receipt Date: 20240614
  Transmission Date: 20240715
  Serious: Yes (Hospitalization)
  Sender: FDA-Public Use
  Company Number: None

PATIENT
  Age: 6 Year
  Sex: Male

DRUGS (13)
  1. MIDAZOLAM [Suspect]
     Active Substance: MIDAZOLAM
     Indication: Generalised tonic-clonic seizure
     Route: 048
  2. CLONAZEPAM [Suspect]
     Active Substance: CLONAZEPAM
     Indication: Generalised tonic-clonic seizure
     Route: 042
  3. FOSPHENYTOIN [Suspect]
     Active Substance: FOSPHENYTOIN
     Indication: Generalised tonic-clonic seizure
     Route: 042
  4. LORAZEPAM [Suspect]
     Active Substance: LORAZEPAM
     Indication: Generalised tonic-clonic seizure
     Route: 042
  5. PHENOBARBITAL [Suspect]
     Active Substance: PHENOBARBITAL
     Indication: Generalised tonic-clonic seizure
     Dosage: DAILY DOSE: 5 MILLIGRAM/KG
     Route: 048
  6. PHENOBARBITAL [Suspect]
     Active Substance: PHENOBARBITAL
     Indication: Generalised tonic-clonic seizure
     Dosage: DAILY DOSE: 10 MILLIGRAM/KG
     Route: 042
  7. LACOSAMIDE [Suspect]
     Active Substance: LACOSAMIDE
     Indication: Generalised tonic-clonic seizure
     Route: 042
  8. LEVETIRACETAM [Suspect]
     Active Substance: LEVETIRACETAM
     Indication: Generalised tonic-clonic seizure
  9. LEVETIRACETAM [Suspect]
     Active Substance: LEVETIRACETAM
     Indication: Generalised tonic-clonic seizure
     Dosage: DAILY DOSE: 40 MILLIGRAM/KG
  10. OXCARBAZEPINE [Concomitant]
     Active Substance: OXCARBAZEPINE
     Indication: Generalised tonic-clonic seizure
     Dosage: DAILY DOSE: 0.25 MILLIGRAM/KG
  11. VALPROIC ACID [Concomitant]
     Active Substance: VALPROIC ACID
     Indication: Generalised tonic-clonic seizure
     Dosage: DAILY DOSE: 10 MILLIGRAM/KG
     Route: 048
  12. CLOBAZAM [Concomitant]
     Active Substance: CLOBAZAM
     Indication: Generalised tonic-clonic seizure
     Dosage: DAILY DOSE: 0.11 MILLIGRAM/KG
  13. CLOBAZAM [Concomitant]
     Active Substance: CLOBAZAM
     Indication: Muscle spasms
     Dosage: DAILY DOSE: 0.11 MILLIGRAM/KG

REACTIONS (5)
  - Rash [Unknown]
  - Bradypnoea [Unknown]
  - Hypoxia [Unknown]
  - Hepatic enzyme increased [Unknown]
  - Off label use [Unknown]
